FAERS Safety Report 15458228 (Version 1)
Quarter: 2018Q3

REPORT INFORMATION
  Report Type: Spontaneous
  Country: US (occurrence: US)
  Receive Date: 20180929
  Receipt Date: 20180929
  Transmission Date: 20181010
  Serious: Yes (Disabling)
  Sender: FDA-Public Use
  Company Number: None

PATIENT
  Age: 50 Year
  Sex: Male
  Weight: 77.4 kg

DRUGS (6)
  1. FINASTERIDE 5MG [Suspect]
     Active Substance: FINASTERIDE
     Indication: BENIGN PROSTATIC HYPERPLASIA
     Dosage: ?          QUANTITY:1 TABLET(S);?
     Route: 048
     Dates: start: 20180101, end: 20180329
  2. VITAMIN D [Concomitant]
     Active Substance: CHOLECALCIFEROL
  3. VITAMIN B6 [Concomitant]
     Active Substance: PYRIDOXINE HYDROCHLORIDE
  4. VITAMIN B12 [Concomitant]
     Active Substance: CYANOCOBALAMIN
  5. ZINC. [Concomitant]
     Active Substance: ZINC
  6. ATENOLOL. [Concomitant]
     Active Substance: ATENOLOL

REACTIONS (4)
  - Depression [None]
  - Tinnitus [None]
  - Anxiety [None]
  - Loss of personal independence in daily activities [None]

NARRATIVE: CASE EVENT DATE: 20180531
